FAERS Safety Report 15436852 (Version 2)
Quarter: 2018Q4

REPORT INFORMATION
  Report Type: Spontaneous
  Country: RU (occurrence: RU)
  Receive Date: 20180927
  Receipt Date: 20181030
  Transmission Date: 20190204
  Serious: Yes (Death, Other)
  Sender: FDA-Public Use
  Company Number: RU-SAOL THERAPEUTICS-2018SAO01017

PATIENT
  Age: 9 Year
  Sex: Female

DRUGS (3)
  1. LIORESAL [Suspect]
     Active Substance: BACLOFEN
     Dosage: 600.3 ?G, \DAY; LAST CHANGE 26-MAY-2018; EXAMINED ON 24-JUL-2018
     Route: 037
  2. LIORESAL [Suspect]
     Active Substance: BACLOFEN
     Dosage: 600 ?G, \DAY
  3. TIZANIDINE. [Concomitant]
     Active Substance: TIZANIDINE
     Dosage: 1 MG, \DAY

REACTIONS (12)
  - Brain oedema [Fatal]
  - Somnolence [Unknown]
  - Malabsorption [Unknown]
  - Depressed level of consciousness [Unknown]
  - Overdose [Unknown]
  - Complication associated with device [Unknown]
  - Sluggishness [Unknown]
  - Heart rate abnormal [Unknown]
  - Respiration abnormal [Unknown]
  - Hypothermia [Unknown]
  - Blood pressure decreased [Unknown]
  - Vomiting [Unknown]

NARRATIVE: CASE EVENT DATE: 2018
